FAERS Safety Report 8395318-4 (Version None)
Quarter: 2012Q2

REPORT INFORMATION
  Report Type: 
  Country: None (occurrence: None)
  Receive Date: 20120524
  Receipt Date: 20120510
  Transmission Date: 20120825
  Serious: Yes (Hospitalization)
  Sender: FDA-Public Use
  Company Number: UTC-018731

PATIENT
  Age: 65 Year
  Sex: Female
  Weight: 71.2 kg

DRUGS (3)
  1. TYVASO [Suspect]
     Indication: COR PULMONALE CHRONIC
     Dosage: 216 MCG (54 MCG, 4 IN 1 D), INHALATION
     Route: 055
     Dates: start: 20120402
  2. LETAIRIS [Concomitant]
  3. BENICAR [Concomitant]

REACTIONS (5)
  - DYSPNOEA [None]
  - PAIN [None]
  - CHILLS [None]
  - PULMONARY OEDEMA [None]
  - HYPERVENTILATION [None]
